FAERS Safety Report 15494629 (Version 1)
Quarter: 2018Q4

REPORT INFORMATION
  Report Type: Spontaneous
  Country: LU (occurrence: LU)
  Receive Date: 20181012
  Receipt Date: 20181012
  Transmission Date: 20190205
  Serious: Yes (Death)
  Sender: FDA-Public Use
  Company Number: LU-IMPAX LABORATORIES, INC-2018-IPXL-03328

PATIENT
  Age: 88 Year
  Sex: Female

DRUGS (2)
  1. ISOSORBIDE DINITRATE ER [Suspect]
     Active Substance: ISOSORBIDE DINITRATE
     Indication: PRODUCT USED FOR UNKNOWN INDICATION
     Dosage: UNK
     Route: 042
  2. FUROSEMIDE. [Suspect]
     Active Substance: FUROSEMIDE
     Indication: PRODUCT USED FOR UNKNOWN INDICATION
     Dosage: UNK
     Route: 042

REACTIONS (2)
  - Multiple organ dysfunction syndrome [Fatal]
  - Cardiac failure congestive [Fatal]
